FAERS Safety Report 6457752-9 (Version None)
Quarter: 2009Q4

REPORT INFORMATION
  Report Type: 
  Country: None (occurrence: None)
  Receive Date: 20091125
  Receipt Date: 20091103
  Transmission Date: 20100525
  Serious: Yes (Life-Threatening, Hospitalization)
  Sender: FDA-Public Use
  Company Number: PHHY2009IE36109

PATIENT
  Sex: Female
  Weight: 69.3 kg

DRUGS (6)
  1. CLOZARIL [Suspect]
     Indication: SCHIZOPHRENIA
     Dosage: 200 MG DAILY
     Dates: start: 20000215
  2. EPILIM [Concomitant]
     Indication: EPILEPSY
     Dosage: 400 MG, BID
     Route: 048
  3. ASPIRIN [Concomitant]
     Indication: MYOCARDIAL ISCHAEMIA
     Dosage: 75 MG, UNK
  4. SERETIDE [Concomitant]
     Indication: CHRONIC OBSTRUCTIVE PULMONARY DISEASE
     Route: 048
  5. VENTOLIN [Concomitant]
     Indication: CHRONIC OBSTRUCTIVE PULMONARY DISEASE
     Dosage: UNK
  6. ELTROXIN [Concomitant]
     Indication: HYPOTHYROIDISM
     Dosage: 50 UG, UNK
     Route: 048

REACTIONS (5)
  - ABDOMINAL PAIN [None]
  - DEEP VEIN THROMBOSIS [None]
  - DUODENAL PERFORATION [None]
  - PULMONARY EMBOLISM [None]
  - SEPSIS [None]
